FAERS Safety Report 5637221-6 (Version None)
Quarter: 2008Q1

REPORT INFORMATION
  Report Type: 
  Country: None (occurrence: None)
  Receive Date: 20080220
  Receipt Date: 20080220
  Transmission Date: 20080703
  Serious: Yes (Hospitalization)
  Sender: FDA-Public Use
  Company Number: None

PATIENT
  Age: 58 Year
  Sex: Male

DRUGS (2)
  1. WARFARIN SODIUM [Suspect]
     Indication: ATRIAL FIBRILLATION
     Dosage: 5MG  HS  PO
     Route: 048
     Dates: start: 20070201, end: 20070227
  2. AMIODARONE HCL [Suspect]
     Dosage: 200MG EVERY DAY PO
     Route: 048
     Dates: start: 20070104, end: 20070227

REACTIONS (2)
  - INTERNATIONAL NORMALISED RATIO INCREASED [None]
  - PLEURAL EFFUSION [None]
